FAERS Safety Report 19350343 (Version 1)
Quarter: 2021Q2

REPORT INFORMATION
  Report Type: Report from Study
  Country: None (occurrence: US)
  Receive Date: 20210531
  Receipt Date: 20210531
  Transmission Date: 20210717
  Serious: Yes (Other)
  Sender: FDA-Public Use
  Company Number: US-ABBVIE-21K-163-3872355-00

PATIENT
  Age: 65 Year
  Sex: Female
  Weight: 95.34 kg

DRUGS (5)
  1. HUMIRA [Suspect]
     Active Substance: ADALIMUMAB
     Route: 058
     Dates: start: 2014, end: 2019
  2. STELARA [Suspect]
     Active Substance: USTEKINUMAB
     Indication: PSORIASIS
     Route: 065
     Dates: start: 2019, end: 202105
  3. BETAMETHASONE. [Concomitant]
     Active Substance: BETAMETHASONE
     Indication: PSORIASIS
     Dosage: CREAM
  4. HUMIRA [Suspect]
     Active Substance: ADALIMUMAB
     Indication: PSORIASIS
     Route: 058
  5. RESINOL [Concomitant]
     Active Substance: PETROLATUM\RESORCINOL
     Indication: PSORIASIS

REACTIONS (8)
  - Renal cancer [Recovered/Resolved]
  - Drug ineffective [Not Recovered/Not Resolved]
  - Cataract [Recovering/Resolving]
  - Blood urine present [Not Recovered/Not Resolved]
  - Psoriasis [Recovering/Resolving]
  - Corneal dystrophy [Recovering/Resolving]
  - Psoriasis [Recovered/Resolved]
  - Stress [Not Recovered/Not Resolved]

NARRATIVE: CASE EVENT DATE: 2013
